FAERS Safety Report 13762525 (Version 1)
Quarter: 2017Q3

REPORT INFORMATION
  Report Type: Spontaneous
  Country: US (occurrence: US)
  Receive Date: 20170718
  Receipt Date: 20170718
  Transmission Date: 20171127
  Serious: No
  Sender: FDA-Public Use
  Company Number: None

PATIENT
  Age: 70 Year
  Sex: Male
  Weight: 73.5 kg

DRUGS (1)
  1. MEROPENEM. [Suspect]
     Active Substance: MEROPENEM
     Indication: BACTERAEMIA
     Route: 042
     Dates: start: 20170605, end: 20170606

REACTIONS (1)
  - Angioedema [None]

NARRATIVE: CASE EVENT DATE: 20170606
